FAERS Safety Report 15544802 (Version 1)
Quarter: 2018Q4

REPORT INFORMATION
  Report Type: Spontaneous
  Country: HR (occurrence: HR)
  Receive Date: 20181024
  Receipt Date: 20181024
  Transmission Date: 20190205
  Serious: Yes (Life-Threatening, Other)
  Sender: FDA-Public Use
  Company Number: HR-ACCORD-073896

PATIENT
  Age: 79 Year
  Sex: Female
  Weight: 100 kg

DRUGS (9)
  1. ALLOPURINOL. [Suspect]
     Active Substance: ALLOPURINOL
     Indication: PRODUCT USED FOR UNKNOWN INDICATION
     Route: 048
  2. LANITOP [Suspect]
     Active Substance: METILDIGOXIN
     Indication: PRODUCT USED FOR UNKNOWN INDICATION
     Route: 048
  3. CARVELOL [Concomitant]
     Route: 048
  4. KETONAL FORTE [Suspect]
     Active Substance: KETOPROFEN
     Indication: PRODUCT USED FOR UNKNOWN INDICATION
     Route: 048
  5. MARTEFARIN [Suspect]
     Active Substance: WARFARIN
     Indication: PRODUCT USED FOR UNKNOWN INDICATION
     Dosage: 1,5 TABLETS ON TUESDAYS AND 2 TABLETS ON THURSDAYS
     Route: 048
  6. ANDOL [Concomitant]
     Active Substance: ASPIRIN
     Route: 048
  7. LEXAURIN [Concomitant]
     Active Substance: BROMAZEPAM
     Route: 048
  8. LOSARTIC [Concomitant]
     Active Substance: LOSARTAN POTASSIUM
     Route: 048
  9. EDEMID FORTE [Concomitant]
     Active Substance: FUROSEMIDE
     Route: 048

REACTIONS (11)
  - Erythema [Unknown]
  - Vaginal haemorrhage [Recovered/Resolved]
  - Visual impairment [Not Recovered/Not Resolved]
  - Alopecia [Unknown]
  - Pruritus [Not Recovered/Not Resolved]
  - Dyspnoea [Recovering/Resolving]
  - Photosensitivity reaction [Not Recovered/Not Resolved]
  - Dysphagia [Not Recovered/Not Resolved]
  - Oedema [Not Recovered/Not Resolved]
  - Fatigue [Unknown]
  - Epistaxis [Recovered/Resolved]

NARRATIVE: CASE EVENT DATE: 20170601
